FAERS Safety Report 5711675-9 (Version None)
Quarter: 2008Q2

REPORT INFORMATION
  Report Type: 
  Country: None (occurrence: None)
  Receive Date: 20080421
  Receipt Date: 20080409
  Transmission Date: 20081010
  Serious: Yes (Other)
  Sender: FDA-Public Use
  Company Number: US-PFIZER INC-2008034062

PATIENT
  Sex: Male

DRUGS (1)
  1. CHANTIX [Suspect]

REACTIONS (4)
  - IRRITABILITY [None]
  - ROAD TRAFFIC ACCIDENT [None]
  - STRESS [None]
  - VIOLENCE-RELATED SYMPTOM [None]
